FAERS Safety Report 24711974 (Version 1)
Quarter: 2024Q4

REPORT INFORMATION
  Report Type: Spontaneous
  Country: US (occurrence: None)
  Receive Date: 20241206
  Receipt Date: 20241206
  Transmission Date: 20250115
  Serious: Yes (Other)
  Sender: Public
  Company Number: None

PATIENT
  Age: 49 Year
  Sex: Female

DRUGS (1)
  1. ONABOTULINUMTOXINA [Suspect]
     Active Substance: ONABOTULINUMTOXINA
     Indication: Migraine
     Dosage: 155 IU INTERNATIONAL UNIT(S) Q90 DAYS INTRAMUSCULAR
     Route: 030

REACTIONS (1)
  - Eyelid ptosis [None]

NARRATIVE: CASE EVENT DATE: 20241014
